FAERS Safety Report 7032783-9 (Version None)
Quarter: 2010Q4

REPORT INFORMATION
  Report Type: 
  Country: None (occurrence: None)
  Receive Date: 20101007
  Receipt Date: 20100928
  Transmission Date: 20110411
  Serious: Yes (Hospitalization)
  Sender: FDA-Public Use
  Company Number: US-JNJFOC-20101000839

PATIENT
  Sex: Male
  Weight: 31.9 kg

DRUGS (9)
  1. REMICADE [Suspect]
     Indication: INFLAMMATORY BOWEL DISEASE
     Route: 042
  2. HUMIRA [Suspect]
     Indication: INFLAMMATORY BOWEL DISEASE
     Route: 050
  3. HUMIRA [Suspect]
     Route: 050
  4. CIMETIDINE [Concomitant]
     Indication: INFLAMMATORY BOWEL DISEASE
  5. PERIACTIN [Concomitant]
     Indication: INFLAMMATORY BOWEL DISEASE
  6. PRILOSEC [Concomitant]
     Indication: INFLAMMATORY BOWEL DISEASE
  7. MULTIVITAMINS WITH IRON [Concomitant]
     Indication: INFLAMMATORY BOWEL DISEASE
  8. RISPERDAL [Concomitant]
     Indication: INFLAMMATORY BOWEL DISEASE
  9. BENADRYL [Concomitant]
     Indication: INFLAMMATORY BOWEL DISEASE

REACTIONS (2)
  - FLUSHING [None]
  - PRURITUS [None]
